FAERS Safety Report 6732384-3 (Version None)
Quarter: 2010Q2

REPORT INFORMATION
  Report Type: 
  Country: None (occurrence: None)
  Receive Date: 20100519
  Receipt Date: 20100512
  Transmission Date: 20101027
  Serious: Yes (Death)
  Sender: FDA-Public Use
  Company Number: DE-ROCHE-702126

PATIENT
  Age: 71 Year
  Sex: Female
  Weight: 65 kg

DRUGS (2)
  1. CAPECITABINE [Suspect]
     Route: 065
     Dates: start: 20080916, end: 20081127
  2. CAELYX [Concomitant]
     Dates: start: 20090122

REACTIONS (1)
  - MALIGNANT NEOPLASM PROGRESSION [None]
